FAERS Safety Report 15484874 (Version 1)
Quarter: 2018Q4

REPORT INFORMATION
  Report Type: Spontaneous
  Country: US (occurrence: US)
  Receive Date: 20181010
  Receipt Date: 20181010
  Transmission Date: 20190205
  Serious: No
  Sender: FDA-Public Use
  Company Number: US-ROCHE-2070629

PATIENT
  Age: 16 Year
  Sex: Female

DRUGS (6)
  1. TEMOZOLOMIDE. [Concomitant]
     Active Substance: TEMOZOLOMIDE
     Dosage: DOSE REDUCED TO 75% AT CYCLE 3 DUE PROLONGED CYTOPENIAS. DRUG WAS STOPPED AFTER CYCLE 6.
     Route: 065
  2. VEMURAFENIB. [Suspect]
     Active Substance: VEMURAFENIB
     Indication: GANGLIOGLIOMA
     Route: 065
  3. TRAMETINIB [Concomitant]
     Active Substance: TRAMETINIB
     Route: 048
  4. LORAZEPAM. [Concomitant]
     Active Substance: LORAZEPAM
  5. TEMOZOLOMIDE. [Concomitant]
     Active Substance: TEMOZOLOMIDE
     Dosage: 2 CYCLES
     Route: 065
  6. DABRAFENIB [Concomitant]
     Active Substance: DABRAFENIB
     Route: 048

REACTIONS (3)
  - Rash morbilliform [Recovering/Resolving]
  - Hypersensitivity [Recovering/Resolving]
  - Drug intolerance [Unknown]
